FAERS Safety Report 9326071 (Version 1)
Quarter: 2013Q2

REPORT INFORMATION
  Report Type: Spontaneous
  Country: US (occurrence: None)
  Receive Date: 20130603
  Receipt Date: 20130603
  Transmission Date: 20140414
  Serious: Yes (Life-Threatening, Disabling)
  Sender: FDA-Public Use
  Company Number: None

PATIENT
  Age: 60 Year
  Sex: Male
  Weight: 72.58 kg

DRUGS (2)
  1. AMIODARONE [Suspect]
     Indication: ATRIAL FIBRILLATION
     Dosage: 1 TAB
     Route: 048
     Dates: start: 20130403, end: 20130515
  2. AMIODARONE [Suspect]
     Indication: CARDIAC OPERATION
     Dosage: 1 TAB
     Route: 048
     Dates: start: 20130403, end: 20130515

REACTIONS (3)
  - Influenza [None]
  - Dyspnoea [None]
  - Toxicity to various agents [None]
